FAERS Safety Report 8607013 (Version 2)
Quarter: 2013Q2

REPORT INFORMATION
  Report Type: Spontaneous
  Country: US (occurrence: US)
  Receive Date: 20120611
  Receipt Date: 20130618
  Transmission Date: 20140414
  Serious: Yes (Hospitalization, Disabling)
  Sender: FDA-Public Use
  Company Number: US-ASTRAZENECA-2012SE34503

PATIENT
  Age: 62 Year
  Sex: Female
  Weight: 89.8 kg

DRUGS (11)
  1. NEXIUM [Suspect]
     Indication: GASTROOESOPHAGEAL REFLUX DISEASE
     Route: 048
     Dates: end: 2010
  2. NEXIUM [Suspect]
     Indication: ABDOMINAL DISCOMFORT
     Route: 048
     Dates: end: 2010
  3. NEXIUM [Suspect]
     Indication: GASTROOESOPHAGEAL REFLUX DISEASE
     Route: 048
  4. NEXIUM [Suspect]
     Indication: ABDOMINAL DISCOMFORT
     Route: 048
  5. OMEPRAZOLE [Suspect]
     Route: 048
     Dates: start: 20100730
  6. OMEPRAZOLE [Suspect]
     Route: 048
     Dates: start: 20121219
  7. ZANTAC [Concomitant]
     Dates: start: 2000
  8. PEPCID [Concomitant]
     Dates: start: 2000
  9. RAMIPRIL [Concomitant]
     Indication: HYPERTENSION
  10. ALEVE [Concomitant]
     Indication: ARTHRITIS
  11. GLIMEPIRIDE [Concomitant]
     Indication: DIABETES MELLITUS

REACTIONS (10)
  - Ill-defined disorder [Unknown]
  - Bone loss [Unknown]
  - Gastrointestinal infection [Unknown]
  - Osteoporosis [Unknown]
  - Wrist fracture [Unknown]
  - Multiple fractures [Unknown]
  - Cataract [Unknown]
  - Upper limb fracture [Unknown]
  - Diabetes mellitus [Unknown]
  - Lower limb fracture [Unknown]
